FAERS Safety Report 25432337 (Version 1)
Quarter: 2025Q2

REPORT INFORMATION
  Report Type: Spontaneous
  Country: DE (occurrence: DE)
  Receive Date: 20250613
  Receipt Date: 20250613
  Transmission Date: 20250717
  Serious: Yes (Hospitalization, Other)
  Sender: ORGANON
  Company Number: None

PATIENT
  Age: 41 Year
  Sex: Female

DRUGS (3)
  1. ORGALUTRAN [Suspect]
     Active Substance: GANIRELIX ACETATE
     Indication: Assisted reproductive technology
  2. MENOTROPINS [Suspect]
     Active Substance: MENOTROPINS
     Indication: Assisted reproductive technology
  3. TRIPTORELIN ACETATE [Suspect]
     Active Substance: TRIPTORELIN ACETATE
     Indication: Assisted reproductive technology

REACTIONS (1)
  - Ovarian haemorrhage [Recovered/Resolved]

NARRATIVE: CASE EVENT DATE: 20250602
